FAERS Safety Report 21225682 (Version 1)
Quarter: 2022Q3

REPORT INFORMATION
  Report Type: Spontaneous
  Country: US (occurrence: US)
  Receive Date: 20220818
  Receipt Date: 20220818
  Transmission Date: 20221027
  Serious: No
  Sender: FDA-Public Use
  Company Number: US-009507513-2208USA002982

PATIENT
  Age: 67 Year
  Sex: Female

DRUGS (2)
  1. KEYTRUDA [Suspect]
     Active Substance: PEMBROLIZUMAB
     Route: 041
  2. LENVATINIB MESYLATE [Suspect]
     Active Substance: LENVATINIB MESYLATE
     Indication: Endometrial cancer
     Dosage: 20 MILLIGRAMS, 2 CAPSULES (10MG)
     Route: 048
     Dates: start: 20220215

REACTIONS (2)
  - Blood pressure systolic increased [Not Recovered/Not Resolved]
  - Tumour marker decreased [Not Recovered/Not Resolved]

NARRATIVE: CASE EVENT DATE: 20220101
